FAERS Safety Report 21244407 (Version 1)
Quarter: 2022Q3

REPORT INFORMATION
  Report Type: Spontaneous
  Country: KR (occurrence: KR)
  Receive Date: 20220823
  Receipt Date: 20220823
  Transmission Date: 20221027
  Serious: No
  Sender: FDA-Public Use
  Company Number: KR-ELI_LILLY_AND_COMPANY-KR202208010542

PATIENT
  Age: 53 Year
  Sex: Female

DRUGS (2)
  1. CYMBALTA [Suspect]
     Active Substance: DULOXETINE HYDROCHLORIDE
     Indication: Carpal tunnel syndrome
     Dosage: 1 DOSAGE FORM, DAILY
     Route: 065
     Dates: start: 20200228
  2. PELUBIPROFEN [Suspect]
     Active Substance: PELUBIPROFEN
     Indication: Carpal tunnel syndrome
     Dosage: 1 DOSAGE FORM, UNKNOWN
     Route: 065
     Dates: start: 20200228

REACTIONS (2)
  - Off label use [Unknown]
  - Hepatic enzyme increased [Not Recovered/Not Resolved]

NARRATIVE: CASE EVENT DATE: 20200228
